FAERS Safety Report 18795074 (Version 7)
Quarter: 2021Q3

REPORT INFORMATION
  Report Type: Report from Study
  Country: CA (occurrence: CA)
  Receive Date: 20210127
  Receipt Date: 20210929
  Transmission Date: 20211014
  Serious: Yes (Hospitalization, Other)
  Sender: FDA-Public Use
  Company Number: CA-OTSUKA-2021_001692

PATIENT
  Sex: Female

DRUGS (2)
  1. CEDAZURIDINE AND DECITABINE [Suspect]
     Active Substance: CEDAZURIDINE\DECITABINE
     Indication: MYELODYSPLASTIC SYNDROME
     Dosage: 35/100MG (35 MG DECITABINE AND 100 MG CEDAZURIDINE) QD 1?5 DAYS
     Route: 065
  2. CEDAZURIDINE AND DECITABINE [Suspect]
     Active Substance: CEDAZURIDINE\DECITABINE
     Dosage: 35/100MG (35 MG DECITABINE AND 100 MG CEDAZURIDINE) QD 1?3 DAYS
     Route: 065
     Dates: start: 20210101

REACTIONS (5)
  - Haemoglobin decreased [Recovered/Resolved]
  - Product use issue [Unknown]
  - Ill-defined disorder [Unknown]
  - Asthenia [Unknown]
  - Dizziness [Unknown]
